FAERS Safety Report 8957367 (Version 7)
Quarter: 2013Q3

REPORT INFORMATION
  Report Type: Report from Study
  Country: DE (occurrence: DE)
  Receive Date: 20121211
  Receipt Date: 20130701
  Transmission Date: 20140515
  Serious: Yes (Other)
  Sender: FDA-Public Use
  Company Number: DE-ROCHE-1163217

PATIENT
  Age: 48 Year
  Sex: Male
  Weight: 133 kg

DRUGS (62)
  1. RITUXIMAB [Suspect]
     Indication: B-CELL LYMPHOMA
     Dosage: LAST DOSE PRIOR TO SAE-11/OCT/2012
     Route: 042
     Dates: start: 20120719
  2. RHUPH20/RITUXIMAB [Suspect]
     Indication: B-CELL LYMPHOMA
     Dosage: LAST DOSE PRIOR TO SAE-11/OCT/2012
     Route: 058
     Dates: start: 20120816
  3. RHUPH20/RITUXIMAB [Suspect]
     Dosage: LAST DOSE PRIOR TOSAE -11/OCT/2012
     Route: 058
     Dates: start: 20120913
  4. RHUPH20/RITUXIMAB [Suspect]
     Dosage: LAST DOSE PRIOR TOSAE -11/OCT/2012
     Route: 058
     Dates: start: 20121011
  5. RHUPH20/RITUXIMAB [Suspect]
     Dosage: LAST DOSE PRIOR TOSAE -11/OCT/2012
     Route: 058
     Dates: start: 20121108
  6. RHUPH20/RITUXIMAB [Suspect]
     Dosage: LAST DOSE PRIOR TOSAE -11/OCT/2012
     Route: 058
     Dates: start: 20121206
  7. RHUPH20/RITUXIMAB [Suspect]
     Dosage: LAST DOSE PRIOR TOSAE -11/OCT/2012
     Route: 058
     Dates: start: 20130103
  8. RHUPH20/RITUXIMAB [Suspect]
     Dosage: LAST DOSE PRIOR TOSAE -11/OCT/2012
     Route: 058
     Dates: start: 20130131
  9. RHUPH20/RITUXIMAB [Suspect]
     Route: 058
     Dates: start: 20130326
  10. RHUPH20/RITUXIMAB [Suspect]
     Route: 058
     Dates: start: 20130523
  11. PANTOPRAZOLE [Concomitant]
     Indication: PROPHYLAXIS
     Route: 065
     Dates: start: 20120719
  12. ALLOPURINOL [Concomitant]
     Indication: PROPHYLAXIS
     Route: 065
     Dates: start: 20120719
  13. COTRIM FORTE [Concomitant]
     Indication: ANTIBIOTIC PROPHYLAXIS
     Route: 065
     Dates: start: 20120721, end: 20120722
  14. ACICLOVIR [Concomitant]
     Indication: PROPHYLAXIS
     Route: 065
     Dates: start: 20120719
  15. RANITIDIN [Concomitant]
     Indication: PREMEDICATION
     Route: 065
     Dates: start: 20120719, end: 20120720
  16. RANITIDIN [Concomitant]
     Route: 065
     Dates: start: 20120816, end: 20120817
  17. RANITIDIN [Concomitant]
     Route: 065
     Dates: start: 20120913, end: 20120914
  18. RANITIDIN [Concomitant]
     Route: 065
     Dates: start: 20121011, end: 20121012
  19. RANITIDIN [Concomitant]
     Route: 065
     Dates: start: 20121109, end: 20121110
  20. RANITIDIN [Concomitant]
     Route: 065
     Dates: start: 20121206, end: 20121207
  21. RANITIDIN [Concomitant]
     Route: 065
     Dates: start: 20130103, end: 20130103
  22. RANITIDIN [Concomitant]
     Route: 065
     Dates: start: 20130131, end: 20130131
  23. RANITIDIN [Concomitant]
     Route: 065
     Dates: start: 20130326, end: 20130326
  24. RANITIDIN [Concomitant]
     Dosage: 1 AMPULLA
     Route: 065
     Dates: start: 20130523, end: 20130523
  25. PARACETAMOL [Concomitant]
     Indication: PREMEDICATION
     Route: 065
     Dates: start: 20120719, end: 20120719
  26. PARACETAMOL [Concomitant]
     Route: 065
     Dates: start: 20120816, end: 20120816
  27. PARACETAMOL [Concomitant]
     Route: 065
     Dates: start: 20120913, end: 20120913
  28. PARACETAMOL [Concomitant]
     Route: 065
     Dates: start: 20121011, end: 20121011
  29. PARACETAMOL [Concomitant]
     Route: 065
     Dates: start: 20121109, end: 20121109
  30. PARACETAMOL [Concomitant]
     Route: 065
     Dates: start: 20130103, end: 20130103
  31. PARACETAMOL [Concomitant]
     Route: 065
     Dates: start: 20130131, end: 20130131
  32. PARACETAMOL [Concomitant]
     Route: 065
     Dates: start: 20130326, end: 20130326
  33. PARACETAMOL [Concomitant]
     Route: 065
     Dates: start: 20130523, end: 20130523
  34. FENISTIL [Concomitant]
     Indication: PREMEDICATION
     Route: 065
     Dates: start: 20120719, end: 20120719
  35. FENISTIL [Concomitant]
     Route: 065
     Dates: start: 20120913, end: 20120913
  36. FENISTIL [Concomitant]
     Route: 065
     Dates: start: 20121011, end: 20121011
  37. FENISTIL [Concomitant]
     Route: 065
     Dates: start: 20121108, end: 20121108
  38. FENISTIL [Concomitant]
     Route: 065
     Dates: start: 20121206, end: 20121206
  39. FENISTIL [Concomitant]
     Route: 065
     Dates: start: 20130103, end: 20130103
  40. FENISTIL [Concomitant]
     Route: 065
     Dates: start: 20130523, end: 20130523
  41. FENISTIL [Concomitant]
     Route: 065
     Dates: start: 20130131, end: 20130131
  42. FENISTIL [Concomitant]
     Route: 065
     Dates: start: 20130326, end: 20130326
  43. PREDNISOLON [Concomitant]
     Indication: PREMEDICATION
     Route: 065
     Dates: start: 20120719, end: 20120719
  44. PREDNISOLON [Concomitant]
     Route: 065
     Dates: start: 20120816, end: 20120816
  45. PREDNISOLON [Concomitant]
     Route: 065
     Dates: start: 20120913, end: 20120913
  46. PREDNISOLON [Concomitant]
     Route: 065
     Dates: start: 20121011, end: 20121011
  47. PREDNISOLON [Concomitant]
     Route: 065
     Dates: start: 20121108, end: 20121108
  48. PREDNISOLON [Concomitant]
     Route: 065
     Dates: start: 20121206, end: 20121206
  49. PREDNISOLON [Concomitant]
     Route: 065
     Dates: start: 20130103, end: 20130103
  50. PREDNISOLON [Concomitant]
     Route: 065
     Dates: start: 20130131, end: 20130131
  51. PREDNISOLON [Concomitant]
     Route: 065
     Dates: start: 20130326, end: 20130326
  52. PREDNISOLON [Concomitant]
     Route: 065
     Dates: start: 20130523, end: 20130523
  53. DEXAMETHASONE [Concomitant]
     Indication: PREMEDICATION
     Route: 065
     Dates: start: 20120719, end: 20120720
  54. DEXAMETHASONE [Concomitant]
     Route: 065
     Dates: start: 20120816, end: 20120817
  55. DEXAMETHASONE [Concomitant]
     Route: 065
     Dates: start: 20120914, end: 20120915
  56. DEXAMETHASONE [Concomitant]
     Route: 065
     Dates: start: 20121011, end: 20121012
  57. DEXAMETHASONE [Concomitant]
     Route: 065
     Dates: start: 20121108, end: 20121109
  58. DEXAMETHASONE [Concomitant]
     Route: 065
     Dates: start: 20121206, end: 20121207
  59. CORTI BICIRON [Concomitant]
     Indication: EYELID INFECTION
     Route: 065
     Dates: start: 20120907, end: 20120912
  60. TOREM [Concomitant]
     Route: 065
     Dates: start: 20130221, end: 20130306
  61. HYDROCHLOROTHIAZIDE [Concomitant]
     Indication: OEDEMA
     Route: 065
     Dates: start: 20130523
  62. INTRATECT [Concomitant]
     Route: 065
     Dates: start: 20101007

REACTIONS (1)
  - Headache [Recovered/Resolved]
